FAERS Safety Report 20085541 (Version 1)
Quarter: 2021Q4

REPORT INFORMATION
  Report Type: Spontaneous
  Country: US (occurrence: US)
  Receive Date: 20211118
  Receipt Date: 20211118
  Transmission Date: 20220303
  Serious: Yes (Other)
  Sender: FDA-Public Use
  Company Number: US-GLAXOSMITHKLINE-US2021GSK235814

PATIENT
  Sex: Male

DRUGS (20)
  1. ZANTAC [Suspect]
     Active Substance: RANITIDINE HYDROCHLORIDE
     Indication: Barrett^s oesophagus
     Dosage: 75 MG, QD
     Route: 065
     Dates: start: 200401, end: 201911
  2. ZANTAC [Suspect]
     Active Substance: RANITIDINE HYDROCHLORIDE
     Indication: Gastrooesophageal reflux disease
     Dosage: 150 MG, QD
     Route: 065
     Dates: start: 200401, end: 201911
  3. ZANTAC [Suspect]
     Active Substance: RANITIDINE HYDROCHLORIDE
     Dosage: 75 MG, 1-2 TIMES PER DAY AS NEEDED
     Route: 065
     Dates: start: 200401, end: 201911
  4. ZANTAC [Suspect]
     Active Substance: RANITIDINE HYDROCHLORIDE
     Dosage: 150 MG, 1-2 TIMES PER DAY AS NEEDED
     Route: 065
     Dates: start: 200401, end: 201911
  5. ZANTAC [Suspect]
     Active Substance: RANITIDINE HYDROCHLORIDE
     Indication: Barrett^s oesophagus
     Dosage: 75 MG BOTH
     Route: 065
     Dates: start: 200401, end: 201911
  6. ZANTAC [Suspect]
     Active Substance: RANITIDINE HYDROCHLORIDE
     Indication: Gastrooesophageal reflux disease
     Dosage: 150 MG, QD
     Route: 065
     Dates: start: 200401, end: 201911
  7. ZANTAC [Suspect]
     Active Substance: RANITIDINE HYDROCHLORIDE
     Dosage: 75 MG,1-2 TIMES PER DAY AS NEEDED
     Route: 065
     Dates: start: 200401, end: 201911
  8. ZANTAC [Suspect]
     Active Substance: RANITIDINE HYDROCHLORIDE
     Dosage: 150 MG, 1-2 TIMES PER DAY AS NEEDED
     Route: 065
     Dates: start: 200401, end: 201901
  9. ZANTAC [Suspect]
     Active Substance: RANITIDINE HYDROCHLORIDE
     Indication: Barrett^s oesophagus
     Dosage: 75 MG, QD
     Route: 065
     Dates: start: 200401, end: 201911
  10. ZANTAC [Suspect]
     Active Substance: RANITIDINE HYDROCHLORIDE
     Indication: Gastrooesophageal reflux disease
     Dosage: 150 MG, QD
     Route: 065
     Dates: start: 200401, end: 201911
  11. ZANTAC [Suspect]
     Active Substance: RANITIDINE HYDROCHLORIDE
     Dosage: 75 MG,1-2 TIMES PER DAY AS NEEDED
     Route: 065
     Dates: start: 200401, end: 201911
  12. ZANTAC [Suspect]
     Active Substance: RANITIDINE HYDROCHLORIDE
     Dosage: 150 MG,1-2 TIMES PER DAY AS NEEDED
     Route: 065
     Dates: start: 200401, end: 201911
  13. RANITIDINE [Suspect]
     Active Substance: RANITIDINE
     Indication: Barrett^s oesophagus
     Dosage: 75 MG, QD
     Route: 065
     Dates: start: 200401, end: 201911
  14. RANITIDINE [Suspect]
     Active Substance: RANITIDINE
     Indication: Gastrooesophageal reflux disease
     Dosage: 150 MG, QD
     Route: 065
     Dates: start: 200401, end: 201911
  15. RANITIDINE [Suspect]
     Active Substance: RANITIDINE
     Dosage: 75 MG, 1-2 TIMES PER DAY AS NEEDED
     Route: 065
     Dates: start: 200401, end: 201911
  16. RANITIDINE [Suspect]
     Active Substance: RANITIDINE
     Dosage: 150 MG,1-2 TIMES PER DAY AS NEEDED
     Route: 065
     Dates: start: 200401, end: 201911
  17. RANITIDINE [Suspect]
     Active Substance: RANITIDINE
     Dosage: 1 OR 2 TIMES DAILY AS NEEDED IF NO ZANTAC AVAILABLE
     Route: 065
     Dates: start: 200401, end: 201911
  18. RANITIDINE [Suspect]
     Active Substance: RANITIDINE
     Dosage: UNK UNK, QD
     Route: 065
     Dates: start: 200401, end: 201911
  19. RANITIDINE [Suspect]
     Active Substance: RANITIDINE
     Indication: Barrett^s oesophagus
     Dosage: UNK, QD
     Route: 065
     Dates: start: 200401, end: 201911
  20. RANITIDINE [Suspect]
     Active Substance: RANITIDINE
     Indication: Gastrooesophageal reflux disease
     Dosage: UNK,1 OR 2 TIMES DAILY AS NEEDED IF NO ZANTAC AVAILABLE
     Route: 065
     Dates: start: 200401, end: 201911

REACTIONS (1)
  - Renal cancer [Unknown]
